FAERS Safety Report 9656009 (Version 1)
Quarter: 2013Q4

REPORT INFORMATION
  Report Type: Spontaneous
  Country: US (occurrence: None)
  Receive Date: 20131029
  Receipt Date: 20131029
  Transmission Date: 20140711
  Serious: Yes (Life-Threatening, Hospitalization)
  Sender: FDA-Public Use
  Company Number: None

PATIENT
  Age: 26 Year
  Sex: Female
  Weight: 49.44 kg

DRUGS (1)
  1. NUVARING MERCK [Suspect]
     Indication: CONTRACEPTION
     Dosage: RING, VAGINAL
     Route: 067
     Dates: start: 20111022, end: 20130629

REACTIONS (1)
  - Pulmonary embolism [None]
